FAERS Safety Report 10449484 (Version 2)
Quarter: 2014Q3

REPORT INFORMATION
  Report Type: Spontaneous
  Country: JP (occurrence: JP)
  Receive Date: 20140912
  Receipt Date: 20140924
  Transmission Date: 20150326
  Serious: Yes (Death)
  Sender: FDA-Public Use
  Company Number: PHHY2014JP098513

PATIENT
  Age: 82 Year
  Sex: Female

DRUGS (2)
  1. GLIVEC [Suspect]
     Active Substance: IMATINIB MESYLATE
     Indication: CHRONIC MYELOID LEUKAEMIA
     Dosage: UNK UKN, UNK
  2. DASATINIB [Suspect]
     Active Substance: DASATINIB
     Dosage: UNK UKN, UNK

REACTIONS (5)
  - Bone marrow failure [Fatal]
  - Blast crisis in myelogenous leukaemia [Fatal]
  - Rash [Unknown]
  - Pyrexia [Unknown]
  - Myalgia [Unknown]
